FAERS Safety Report 18598529 (Version 3)
Quarter: 2021Q1

REPORT INFORMATION
  Report Type: Report from Study
  Country: US (occurrence: US)
  Receive Date: 20201210
  Receipt Date: 20210213
  Transmission Date: 20210419
  Serious: Yes (Other)
  Sender: FDA-Public Use
  Company Number: NVSC2020US328560

PATIENT
  Sex: Female

DRUGS (1)
  1. PIQRAY [Suspect]
     Active Substance: ALPELISIB
     Indication: PRODUCT USED FOR UNKNOWN INDICATION
     Dosage: 300 MG (TAKE 2 TABLETS (300MG) DAILY, TAKE WITH FOOD)
     Route: 048

REACTIONS (7)
  - COVID-19 [Unknown]
  - Hypertension [Unknown]
  - Pneumonia [Unknown]
  - Thrombosis [Unknown]
  - Deep vein thrombosis [Unknown]
  - Blood glucose increased [Not Recovered/Not Resolved]
  - Dizziness [Not Recovered/Not Resolved]
